FAERS Safety Report 13985908 (Version 1)
Quarter: 2017Q3

REPORT INFORMATION
  Report Type: Spontaneous
  Country: US (occurrence: US)
  Receive Date: 20170919
  Receipt Date: 20170919
  Transmission Date: 20171128
  Serious: No
  Sender: FDA-Public Use
  Company Number: US-PFIZER INC-2017401408

PATIENT
  Age: 62 Year
  Sex: Female
  Weight: 86.17 kg

DRUGS (1)
  1. XALKORI [Suspect]
     Active Substance: CRIZOTINIB
     Indication: LUNG NEOPLASM MALIGNANT
     Dosage: 200 MG, 2X/DAY
     Route: 048
     Dates: start: 20170721

REACTIONS (3)
  - Neoplasm progression [Unknown]
  - Cough [Unknown]
  - Abdominal discomfort [Unknown]
